FAERS Safety Report 12407424 (Version 1)
Quarter: 2016Q2

REPORT INFORMATION
  Report Type: Report from Study
  Country: US (occurrence: US)
  Receive Date: 20160526
  Receipt Date: 20160526
  Transmission Date: 20160815
  Serious: No
  Sender: FDA-Public Use
  Company Number: GXBR2015US001434

PATIENT
  Age: 6 Year
  Sex: Female

DRUGS (4)
  1. DESMOPRESSIN [Concomitant]
     Active Substance: DESMOPRESSIN
     Indication: HYPOPITUITARISM
     Dosage: 0.1 MG; 1.5 TAB IN AM AND 1 TAB IN PM
     Route: 048
  2. OMNITROPE [Suspect]
     Active Substance: SOMATROPIN
     Indication: HYPOPITUITARISM
     Dosage: 0.8 MG, QD
     Route: 065
     Dates: start: 20150514
  3. LEVOTHYROXINE. [Concomitant]
     Active Substance: LEVOTHYROXINE
     Indication: HYPOPITUITARISM
     Dosage: 50 UG, QD
  4. HYDROCORTISONE. [Concomitant]
     Active Substance: HYDROCORTISONE
     Indication: HYPOPITUITARISM
     Dosage: 5 MG IN THE AM AND 2.5 MG IN THE AFTERNOON AND PM

REACTIONS (6)
  - Thirst [Not Recovered/Not Resolved]
  - Erythema [Recovered/Resolved]
  - Headache [Recovered/Resolved]
  - Lethargy [Not Recovered/Not Resolved]
  - Pollakiuria [Not Recovered/Not Resolved]
  - Hypoaesthesia [Not Recovered/Not Resolved]

NARRATIVE: CASE EVENT DATE: 20150518
